FAERS Safety Report 6806309-6 (Version None)
Quarter: 2010Q2

REPORT INFORMATION
  Report Type: 
  Country: None (occurrence: None)
  Receive Date: 20100629
  Receipt Date: 20081006
  Transmission Date: 20101027
  Serious: No
  Sender: FDA-Public Use
  Company Number: US-PFIZER INC-2007106205

PATIENT
  Sex: Female
  Weight: 59.09 kg

DRUGS (4)
  1. XANAX [Suspect]
     Indication: GENERALISED ANXIETY DISORDER
     Dates: start: 19850101, end: 20071101
  2. ALPRAZOLAM [Suspect]
     Indication: GENERALISED ANXIETY DISORDER
     Dates: start: 20071101
  3. FOSAMAX [Concomitant]
     Indication: OSTEOPENIA
  4. VITAMINS [Concomitant]

REACTIONS (4)
  - FEELING ABNORMAL [None]
  - PALPITATIONS [None]
  - PARAESTHESIA [None]
  - SENSORY DISTURBANCE [None]
